FAERS Safety Report 6057286-X (Version None)
Quarter: 2009Q1

REPORT INFORMATION
  Report Type: 
  Country: None (occurrence: None)
  Receive Date: 20090129
  Receipt Date: 20080805
  Transmission Date: 20090719
  Serious: No
  Sender: FDA-Public Use
  Company Number: A0741127A

PATIENT
  Age: 61 Year
  Sex: Male

DRUGS (3)
  1. WELLBUTRIN [Suspect]
     Dosage: 75MG THREE TIMES PER DAY
     Route: 048
  2. NEURONTIN [Concomitant]
  3. ATIVAN [Concomitant]

REACTIONS (2)
  - OSTEOPOROSIS [None]
  - PRODUCT QUALITY ISSUE [None]
